FAERS Safety Report 5758076-5 (Version None)
Quarter: 2008Q2

REPORT INFORMATION
  Report Type: 
  Country: None (occurrence: None)
  Receive Date: 20080602
  Receipt Date: 20080602
  Transmission Date: 20081010
  Serious: Yes (Life-Threatening, Hospitalization)
  Sender: FDA-Public Use
  Company Number: None

PATIENT
  Sex: Male
  Weight: 80.2867 kg

DRUGS (15)
  1. DASATINIB 50MG BMS [Suspect]
     Indication: NEOPLASM MALIGNANT
     Dosage: 150MG DAILY PO
     Route: 048
     Dates: start: 20080512, end: 20080520
  2. CETUXIMAB BMS [Suspect]
     Indication: NEOPLASM MALIGNANT
     Dosage: 400MG/M2 WEEKLY IV DRIP
     Route: 041
     Dates: start: 20080513, end: 20080513
  3. ASPIRIN [Concomitant]
  4. COLACE [Concomitant]
  5. SENNA [Concomitant]
  6. ZETIA [Concomitant]
  7. IMDUR [Concomitant]
  8. METOPROLOL [Concomitant]
  9. MULTI-VITAMIN [Concomitant]
  10. IRON SULFATETHIAMIN COMPOUND TAB [Concomitant]
  11. ACTOS [Concomitant]
  12. K-DUR [Concomitant]
  13. ZOCOR [Concomitant]
  14. COMPAZINE [Concomitant]
  15. REGLAN [Concomitant]

REACTIONS (5)
  - ELECTROLYTE IMBALANCE [None]
  - NAUSEA [None]
  - SMALL INTESTINAL OBSTRUCTION [None]
  - VOMITING [None]
  - WEIGHT DECREASED [None]
